FAERS Safety Report 9512970 (Version 3)
Quarter: 2013Q4

REPORT INFORMATION
  Report Type: Report from Study
  Country: US (occurrence: US)
  Receive Date: 20130910
  Receipt Date: 20131119
  Transmission Date: 20140711
  Serious: Yes (Hospitalization)
  Sender: FDA-Public Use
  Company Number: US-ACTELION-A-US2013-88072

PATIENT
  Age: 55 Year
  Sex: Female

DRUGS (4)
  1. TRACLEER [Suspect]
     Indication: PULMONARY ARTERIAL HYPERTENSION
     Dosage: 125 MG, BID
     Route: 048
     Dates: start: 200410
  2. TRACLEER [Suspect]
     Dosage: 62.5 MG, BID
     Route: 048
     Dates: start: 200409, end: 200410
  3. SILDENAFIL [Concomitant]
  4. COUMADIN [Concomitant]

REACTIONS (9)
  - Mechanical ventilation [Unknown]
  - Procedural complication [Recovering/Resolving]
  - Heart rate increased [Recovered/Resolved]
  - Cardiac ablation [Recovered/Resolved]
  - Respiratory distress [Recovered/Resolved]
  - Tracheostomy [Recovered/Resolved]
  - Loss of consciousness [Recovered/Resolved]
  - Fall [Recovered/Resolved]
  - Asthenia [Recovering/Resolving]
